FAERS Safety Report 5299805-7 (Version None)
Quarter: 2007Q2

REPORT INFORMATION
  Report Type: 
  Country: None (occurrence: None)
  Receive Date: 20070417
  Receipt Date: 20070410
  Transmission Date: 20071010
  Serious: Yes (Other)
  Sender: FDA-Public Use
  Company Number: NL-PFIZER INC-2007029352

PATIENT
  Sex: Female

DRUGS (7)
  1. CELEBREX [Suspect]
     Indication: RHEUMATOID ARTHRITIS
     Dosage: DAILY DOSE:200MG
     Route: 048
  2. CELEBREX [Suspect]
     Indication: OSTEOARTHRITIS
  3. SPIRIVA [Concomitant]
  4. SERTRALINE [Concomitant]
  5. VENTOLIN [Concomitant]
  6. SERETIDE [Concomitant]
  7. OMEPRAZOLE [Concomitant]

REACTIONS (5)
  - COUGH [None]
  - DYSPNOEA [None]
  - OSTEOARTHRITIS [None]
  - PRODUCTIVE COUGH [None]
  - RHEUMATOID ARTHRITIS [None]
